FAERS Safety Report 4695117-0 (Version None)
Quarter: 2005Q2

REPORT INFORMATION
  Report Type: 
  Country: None (occurrence: None)
  Receive Date: 20050617
  Receipt Date: 20050610
  Transmission Date: 20051028
  Serious: Yes (Hospitalization)
  Sender: FDA-Public Use
  Company Number: ZONI002177

PATIENT
  Age: 68 Year
  Sex: Male

DRUGS (5)
  1. ZONISAMIDE [Suspect]
     Indication: CONVULSION
     Dosage: 1.5 GM, ORAL
     Route: 048
     Dates: start: 20050420, end: 20050601
  2. VERAPAMIL HYDROCHLORIDE [Concomitant]
  3. SUCRALFATE [Concomitant]
  4. MAGNESIUM OXIDE (MAGNESIUM OXIDE) [Concomitant]
  5. SYMMETREL [Concomitant]

REACTIONS (1)
  - WHITE BLOOD CELL COUNT DECREASED [None]
